FAERS Safety Report 7806884-9 (Version None)
Quarter: 2011Q4

REPORT INFORMATION
  Report Type: 
  Country: None (occurrence: None)
  Receive Date: 20111011
  Receipt Date: 20110721
  Transmission Date: 20120403
  Serious: No
  Sender: FDA-Public Use
  Company Number: US-MYLANLABS-2011S1015242

PATIENT
  Sex: Female

DRUGS (5)
  1. BROMOCRIPTINE MESYLATE [Suspect]
     Route: 048
     Dates: start: 20110701
  2. BROMOCRIPTINE MESYLATE [Suspect]
     Indication: HYPERPROLACTINAEMIA
     Route: 048
     Dates: start: 20110601, end: 20110701
  3. PRENATAL VITAMINS [Concomitant]
     Dosage: PLANNING A PREGNANCY -NOT CURRENTLY PREGNANT
     Route: 048
  4. FISH OIL [Concomitant]
     Route: 048
  5. VITAMIN D [Concomitant]
     Route: 048

REACTIONS (3)
  - POLLAKIURIA [None]
  - THIRST [None]
  - NAUSEA [None]
